FAERS Safety Report 21892472 (Version 1)
Quarter: 2023Q1

REPORT INFORMATION
  Report Type: Spontaneous
  Country: FI (occurrence: FI)
  Receive Date: 20230120
  Receipt Date: 20230120
  Transmission Date: 20230418
  Serious: Yes (Other)
  Sender: FDA-Public Use
  Company Number: FI-ELI_LILLY_AND_COMPANY-FI202301003512

PATIENT
  Sex: Female

DRUGS (3)
  1. TRULICITY [Suspect]
     Active Substance: DULAGLUTIDE
     Indication: Type 2 diabetes mellitus
     Dosage: UNK UNK, UNKNOWN
     Route: 065
  2. SEMAGLUTIDE [Concomitant]
     Active Substance: SEMAGLUTIDE
     Indication: Type 2 diabetes mellitus
     Dosage: UNK
  3. OZEMPIC [Concomitant]
     Active Substance: SEMAGLUTIDE
     Indication: Type 2 diabetes mellitus
     Dosage: UNK UNK, WEEKLY (1/W)

REACTIONS (12)
  - Gangrene [Unknown]
  - Weight fluctuation [Unknown]
  - Liver function test increased [Unknown]
  - Skin disorder [Unknown]
  - Depression [Unknown]
  - Insomnia [Unknown]
  - Fat tissue increased [Unknown]
  - Stress [Unknown]
  - Blood glucose increased [Unknown]
  - Stress fracture [Unknown]
  - Blood triglycerides abnormal [Unknown]
  - Nausea [Unknown]
